FAERS Safety Report 15952428 (Version 6)
Quarter: 2019Q3

REPORT INFORMATION
  Report Type: Spontaneous
  Country: US (occurrence: US)
  Receive Date: 20190212
  Receipt Date: 20190705
  Transmission Date: 20191004
  Serious: Yes (Hospitalization)
  Sender: FDA-Public Use
  Company Number: US-PFIZER INC-2019055682

PATIENT
  Age: 34 Year
  Sex: Female

DRUGS (4)
  1. VFEND [Suspect]
     Active Substance: VORICONAZOLE
     Dosage: 50 MG, UNK (X30)
  2. VFEND [Suspect]
     Active Substance: VORICONAZOLE
     Dosage: 250 MG, 2X/DAY (50MG, TAKE 5 TABLETS BY MOUTH EVERY 12 HOURS)
     Route: 048
     Dates: start: 201903
  3. VFEND [Suspect]
     Active Substance: VORICONAZOLE
     Indication: ASPERGILLUS INFECTION
     Dosage: 200 MG, 2X/DAY
     Route: 048
     Dates: start: 2018
  4. VFEND [Suspect]
     Active Substance: VORICONAZOLE
     Dosage: 500 MG, 2X/DAY

REACTIONS (4)
  - Drug level below therapeutic [Unknown]
  - Overdose [Unknown]
  - Drug ineffective [Unknown]
  - Lung disorder [Not Recovered/Not Resolved]

NARRATIVE: CASE EVENT DATE: 20181222
